FAERS Safety Report 10890031 (Version 2)
Quarter: 2015Q1

REPORT INFORMATION
  Report Type: Spontaneous
  Country: BE (occurrence: BE)
  Receive Date: 20150305
  Receipt Date: 20150323
  Transmission Date: 20150721
  Serious: Yes (Life-Threatening, Hospitalization, Other)
  Sender: FDA-Public Use
  Company Number: BE-ROCHE-1547687

PATIENT
  Age: 76 Year
  Sex: Female
  Weight: 68 kg

DRUGS (2)
  1. LUCENTIS [Suspect]
     Active Substance: RANIBIZUMAB
     Indication: AGE-RELATED MACULAR DEGENERATION
     Dosage: 10MG/ML
     Route: 050
     Dates: start: 20100729, end: 20140310
  2. AVASTIN [Suspect]
     Active Substance: BEVACIZUMAB
     Indication: AGE-RELATED MACULAR DEGENERATION
     Route: 050
     Dates: start: 20100729, end: 20140310

REACTIONS (9)
  - Extremity necrosis [Unknown]
  - Asthenia [Unknown]
  - Anaemia [Unknown]
  - Myelodysplastic syndrome [Not Recovered/Not Resolved]
  - Internal haemorrhage [Recovered/Resolved]
  - Duodenal operation [Unknown]
  - Respiratory disorder [Unknown]
  - Thrombocytopenia [Not Recovered/Not Resolved]
  - Epistaxis [Unknown]

NARRATIVE: CASE EVENT DATE: 20100816
